FAERS Safety Report 7337382-7 (Version None)
Quarter: 2011Q1

REPORT INFORMATION
  Report Type: 
  Country: None (occurrence: None)
  Receive Date: 20110224
  Receipt Date: 20110218
  Transmission Date: 20110831
  Serious: Yes (Other)
  Sender: FDA-Public Use
  Company Number: TRP_07001_2010

PATIENT
  Sex: Female

DRUGS (2)
  1. RIBASPHERE [Suspect]
     Indication: PRODUCT USED FOR UNKNOWN INDICATION
     Dosage: (DF)
  2. PEGASYS [Suspect]
     Indication: PRODUCT USED FOR UNKNOWN INDICATION
     Dosage: (DF)

REACTIONS (10)
  - INFLUENZA LIKE ILLNESS [None]
  - DIZZINESS [None]
  - BLOOD URINE PRESENT [None]
  - MULTIPLE ALLERGIES [None]
  - EAR INFECTION [None]
  - WHITE BLOOD CELL COUNT DECREASED [None]
  - NASOPHARYNGITIS [None]
  - NAUSEA [None]
  - VOMITING [None]
  - FACIAL PAIN [None]
